FAERS Safety Report 15525604 (Version 2)
Quarter: 2018Q4

REPORT INFORMATION
  Report Type: Spontaneous
  Country: CN (occurrence: CN)
  Receive Date: 20181019
  Receipt Date: 20181026
  Transmission Date: 20190205
  Serious: Yes (Death)
  Sender: FDA-Public Use
  Company Number: CN-B.I. PHARMACEUTICALS,INC./RIDGEFIELD-2018-BI-051483

PATIENT
  Age: 64 Year
  Sex: Male

DRUGS (1)
  1. GILOTRIF [Suspect]
     Active Substance: AFATINIB
     Indication: COLORECTAL CANCER METASTATIC
     Route: 048
     Dates: start: 201708

REACTIONS (4)
  - Lung infection [Fatal]
  - Renal failure [Fatal]
  - Off label use [Unknown]
  - Pelvic pain [Recovered/Resolved]
